FAERS Safety Report 22394049 (Version 1)
Quarter: 2023Q2

REPORT INFORMATION
  Report Type: Spontaneous
  Country: FR (occurrence: FR)
  Receive Date: 20230601
  Receipt Date: 20230601
  Transmission Date: 20230722
  Serious: Yes (Death)
  Sender: FDA-Public Use
  Company Number: None

PATIENT
  Age: 55 Year
  Sex: Female

DRUGS (6)
  1. PAROXETINE [Suspect]
     Active Substance: PAROXETINE
     Indication: Depression
     Dosage: 20 MILLIGRAM, QD (PER DAY)
     Route: 048
     Dates: start: 20190919
  2. CLOZAPINE [Suspect]
     Active Substance: CLOZAPINE
     Indication: Schizophrenia
     Dosage: 100MG MORNING, NOON, EVENING AND 1.5 AT BEDTIME
     Route: 048
     Dates: start: 20151021
  3. XANAX [Suspect]
     Active Substance: ALPRAZOLAM
     Indication: Anxiety
     Dosage: 5 DF (1 TAB MORNING, NOON, EVENING AND 2 BEDTIME)
     Route: 048
     Dates: start: 20200305
  4. CYAMEMAZINE [Suspect]
     Active Substance: CYAMEMAZINE
     Indication: Schizophrenia
     Dosage: 25 DROPS MORNING 30 AT NOON, NIGHT 10 IF ANXIETY
     Route: 048
     Dates: start: 20200820
  5. TEGRETOL [Suspect]
     Active Substance: CARBAMAZEPINE
     Indication: Schizophrenia
     Dosage: 2 DOSAGE FORM, BID (1 MORNING AND 1 EVENING)
     Route: 048
     Dates: start: 20131011
  6. TRIMEPRAZINE [Concomitant]
     Active Substance: TRIMEPRAZINE
     Dosage: UNK
     Route: 065

REACTIONS (1)
  - Choking [Fatal]

NARRATIVE: CASE EVENT DATE: 20230402
